FAERS Safety Report 6625922-2 (Version None)
Quarter: 2010Q1

REPORT INFORMATION
  Report Type: 
  Country: None (occurrence: None)
  Receive Date: 20100310
  Receipt Date: 20100301
  Transmission Date: 20100710
  Serious: Yes (Life-Threatening)
  Sender: FDA-Public Use
  Company Number: GXKR2010FR02467

PATIENT

DRUGS (4)
  1. BROMAZEPAM (NGX) [Suspect]
     Route: 065
  2. FLUOXETINE [Suspect]
     Route: 065
  3. ZOLPIDEM (NGX) [Suspect]
     Dosage: 4 G, UNK
     Route: 065
  4. TIANEPTINE [Suspect]
     Route: 065

REACTIONS (5)
  - BRADYCARDIA [None]
  - CARDIAC ARREST [None]
  - LIFE SUPPORT [None]
  - MECHANICAL VENTILATION [None]
  - OVERDOSE [None]
